FAERS Safety Report 13771923 (Version 1)
Quarter: 2017Q3

REPORT INFORMATION
  Report Type: Spontaneous
  Country: US (occurrence: US)
  Receive Date: 20170720
  Receipt Date: 20170720
  Transmission Date: 20171127
  Serious: No
  Sender: FDA-Public Use
  Company Number: US-BION-006178

PATIENT
  Sex: Male

DRUGS (1)
  1. CALCITRIOL 0.25 MCG AND 0.5 MCG CAPSULE SOFT GEL [Suspect]
     Active Substance: CALCITRIOL
     Indication: PRODUCT USED FOR UNKNOWN INDICATION
     Dosage: PATIENT HAD BEEN ON IT FOR ABOUT 3 MONTHS

REACTIONS (2)
  - Photophobia [Unknown]
  - Vision blurred [Unknown]
